FAERS Safety Report 4274959-X (Version None)
Quarter: 2004Q1

REPORT INFORMATION
  Report Type: 
  Country: None (occurrence: None)
  Receive Date: 20040110
  Receipt Date: 20040109
  Transmission Date: 20041129
  Serious: Yes (Life-Threatening)
  Sender: FDA-Public Use
  Company Number: 3288

PATIENT

DRUGS (1)
  1. NATALCARE PIC FORTE PRENATAL MULTIVITAMIN/MINERAL TABLETS WITH POLYSAC [Suspect]
     Dosage: ADULT ONE TABLET DAILY OR AS DIRECTED BY PHYSICIAN

REACTIONS (1)
  - OVERDOSE [None]
